FAERS Safety Report 11779969 (Version 2)
Quarter: 2016Q1

REPORT INFORMATION
  Report Type: Spontaneous
  Country: US (occurrence: US)
  Receive Date: 20151125
  Receipt Date: 20160125
  Transmission Date: 20160525
  Serious: No
  Sender: FDA-Public Use
  Company Number: US-AMGEN-USASP2015121476

PATIENT
  Age: 41 Year
  Sex: Female
  Weight: 70.75 kg

DRUGS (1)
  1. ENBREL [Suspect]
     Active Substance: ETANERCEPT
     Indication: PSORIASIS
     Dosage: 50 MG, QWK
     Route: 058
     Dates: start: 201304

REACTIONS (12)
  - Therapeutic response unexpected [Recovered/Resolved]
  - Muscle spasms [Recovered/Resolved]
  - Injection site erythema [Unknown]
  - Fatigue [Recovered/Resolved]
  - Somnolence [Recovered/Resolved]
  - Contusion [Recovered/Resolved]
  - Injection site pain [Unknown]
  - Inappropriate schedule of drug administration [Unknown]
  - Arthralgia [Recovered/Resolved]
  - Heart rate increased [Recovered/Resolved]
  - Device issue [Unknown]
  - Injection site discomfort [Unknown]

NARRATIVE: CASE EVENT DATE: 2015
